FAERS Safety Report 23075062 (Version 1)
Quarter: 2023Q4

REPORT INFORMATION
  Report Type: Spontaneous
  Country: JP (occurrence: JP)
  Receive Date: 20231017
  Receipt Date: 20231017
  Transmission Date: 20240110
  Serious: Yes (Life-Threatening, Hospitalization)
  Sender: FDA-Public Use
  Company Number: JP-CMP PHARMA-2023CMP00047

PATIENT
  Age: 50 Year
  Sex: Male

DRUGS (3)
  1. AMLODIPINE [Suspect]
     Active Substance: AMLODIPINE BESYLATE
     Dosage: HUNDREDS OF EMPTY PACKAGES FOUND IN THE HOME
  2. ATENOLOL [Suspect]
     Active Substance: ATENOLOL
     Dosage: HUNDREDS OF EMPTY PACKAGES FOUND IN THE HOME
  3. ETIZOLAM [Suspect]
     Active Substance: ETIZOLAM
     Dosage: HUNDREDS OF EMPTY PACKAGES FOUND IN THE HOME

REACTIONS (6)
  - Cardiac arrest [Recovered/Resolved]
  - Electrocardiogram J wave abnormal [Recovered/Resolved]
  - Cardiogenic shock [Recovered/Resolved]
  - Septic shock [Recovered/Resolved]
  - Acute kidney injury [Recovered/Resolved]
  - Overdose [Recovered/Resolved]
